FAERS Safety Report 25512231 (Version 4)
Quarter: 2025Q3

REPORT INFORMATION
  Report Type: Spontaneous
  Country: JP (occurrence: JP)
  Receive Date: 20250703
  Receipt Date: 20250908
  Transmission Date: 20251021
  Serious: Yes (Hospitalization)
  Sender: ELI LILLY AND COMPANY
  Company Number: JP-NShinyaku-EVA202408925ZZLILLY

PATIENT
  Age: 60 Year
  Sex: Female

DRUGS (10)
  1. TADALAFIL [Suspect]
     Active Substance: TADALAFIL
     Indication: Pulmonary arterial hypertension
     Dosage: 40 MG, DAILY
     Route: 048
  2. TADALAFIL [Suspect]
     Active Substance: TADALAFIL
     Dosage: 20 MG, DAILY
     Route: 048
  3. TADALAFIL [Suspect]
     Active Substance: TADALAFIL
     Dosage: 40 MG, DAILY
     Route: 048
  4. UPTRAVI [Suspect]
     Active Substance: SELEXIPAG
     Indication: Pulmonary arterial hypertension
     Dosage: 0.2 MG, BID
     Route: 048
     Dates: start: 20241126, end: 20250106
  5. UPTRAVI [Suspect]
     Active Substance: SELEXIPAG
     Dosage: 0.4 MG, BID
     Route: 048
     Dates: start: 20250107, end: 20250302
  6. UPTRAVI [Suspect]
     Active Substance: SELEXIPAG
     Dosage: 1.2 MG, DAILY
     Route: 048
     Dates: start: 20250303, end: 20250401
  7. UPTRAVI [Suspect]
     Active Substance: SELEXIPAG
     Dosage: 1.6 MG, DAILY
     Route: 048
     Dates: start: 20250402
  8. UPTRAVI [Suspect]
     Active Substance: SELEXIPAG
     Dosage: 0.8 MG, DAILY
     Route: 048
     Dates: start: 202506
  9. OPSUMIT [Concomitant]
     Active Substance: MACITENTAN
     Indication: Pulmonary arterial hypertension
     Route: 048
  10. TREPROSTINIL [Concomitant]
     Active Substance: TREPROSTINIL
     Route: 055

REACTIONS (14)
  - Cardiac failure acute [Recovered/Resolved]
  - Brain natriuretic peptide increased [Recovering/Resolving]
  - Renal function test abnormal [Not Recovered/Not Resolved]
  - Diarrhoea [Recovering/Resolving]
  - Malaise [Recovering/Resolving]
  - Abdominal discomfort [Recovering/Resolving]
  - Headache [Not Recovered/Not Resolved]
  - Abdominal discomfort [Not Recovered/Not Resolved]
  - Blood pressure decreased [Not Recovered/Not Resolved]
  - Dyspnoea [Not Recovered/Not Resolved]
  - Dyspnoea [Recovered/Resolved]
  - Malaise [Not Recovered/Not Resolved]
  - Dyspnoea [Not Recovered/Not Resolved]
  - Chest discomfort [Not Recovered/Not Resolved]

NARRATIVE: CASE EVENT DATE: 20241126
